FAERS Safety Report 7967920-2 (Version None)
Quarter: 2011Q4

REPORT INFORMATION
  Report Type: 
  Country: None (occurrence: None)
  Receive Date: 20111209
  Receipt Date: 20111204
  Transmission Date: 20120403
  Serious: Yes (Other)
  Sender: FDA-Public Use
  Company Number: US-SANOFI-AVENTIS-2011SA079914

PATIENT
  Sex: Male

DRUGS (4)
  1. APIDRA [Suspect]
     Dosage: DOSE:40 UNIT(S)
     Route: 058
  2. SOLOSTAR [Suspect]
  3. SOLOSTAR [Suspect]
  4. LANTUS [Suspect]
     Dosage: DOSE:35 UNIT(S)
     Route: 058

REACTIONS (2)
  - EYE HAEMORRHAGE [None]
  - VISUAL ACUITY REDUCED [None]
